FAERS Safety Report 5759210-3 (Version None)
Quarter: 2008Q2

REPORT INFORMATION
  Report Type: 
  Country: None (occurrence: None)
  Receive Date: 20080604
  Receipt Date: 20080523
  Transmission Date: 20081010
  Serious: Yes (Other)
  Sender: FDA-Public Use
  Company Number: FR-PFIZER INC-2008043788

PATIENT
  Sex: Female
  Weight: 69 kg

DRUGS (2)
  1. CHANTIX [Suspect]
     Indication: SMOKING CESSATION THERAPY
     Dates: start: 20080428, end: 20080509
  2. CONTRACEPTIVE, UNSPECIFIED [Concomitant]
     Route: 048

REACTIONS (5)
  - DEPRESSION [None]
  - NAUSEA [None]
  - SUICIDAL IDEATION [None]
  - VERTIGO [None]
  - WITHDRAWAL SYNDROME [None]
